FAERS Safety Report 4472654-5 (Version None)
Quarter: 2004Q4

REPORT INFORMATION
  Report Type: 
  Country: None (occurrence: None)
  Receive Date: 20041012
  Receipt Date: 20041012
  Transmission Date: 20050328
  Serious: No
  Sender: FDA-Public Use
  Company Number: None

PATIENT
  Age: 17 Year
  Sex: Male

DRUGS (1)
  1. ACCUTANE [Suspect]
     Indication: ACNE
     Dosage: 40 MG PO BID
     Route: 048
     Dates: start: 20040701, end: 20040801

REACTIONS (4)
  - ANGER [None]
  - HOMICIDAL IDEATION [None]
  - INSOMNIA [None]
  - SUICIDAL IDEATION [None]
